FAERS Safety Report 12495009 (Version 2)
Quarter: 2016Q3

REPORT INFORMATION
  Report Type: Report from Study
  Country: US (occurrence: US)
  Receive Date: 20160624
  Receipt Date: 20160811
  Transmission Date: 20161109
  Serious: Yes (Other)
  Sender: FDA-Public Use
  Company Number: US-PFIZER INC-2016224280

PATIENT
  Age: 63 Year
  Sex: Female

DRUGS (5)
  1. METHOTREXATE SODIUM. [Suspect]
     Active Substance: METHOTREXATE SODIUM
     Dosage: UNK
     Dates: start: 2016, end: 2016
  2. ENBREL [Suspect]
     Active Substance: ETANERCEPT
     Dosage: UNK
     Dates: start: 20160129, end: 2016
  3. XELJANZ [Suspect]
     Active Substance: TOFACITINIB CITRATE
     Dosage: UNK
     Dates: start: 2016
  4. ENBREL [Suspect]
     Active Substance: ETANERCEPT
     Indication: RHEUMATOID ARTHRITIS
     Dosage: 50 MG, WEEKLY
     Dates: start: 20160129, end: 20160129
  5. ANAKINRA [Suspect]
     Active Substance: ANAKINRA
     Dosage: UNK
     Dates: start: 2016

REACTIONS (17)
  - Cellulitis streptococcal [Unknown]
  - Urinary tract infection [Unknown]
  - Drug hypersensitivity [Unknown]
  - Fibromyalgia [Unknown]
  - Back disorder [Unknown]
  - Arthritis [Unknown]
  - Sciatic nerve injury [Unknown]
  - Drug ineffective [Unknown]
  - Peripheral swelling [Unknown]
  - Spinal compression fracture [Unknown]
  - Mobility decreased [Unknown]
  - Rheumatoid arthritis [Unknown]
  - Gastric infection [Unknown]
  - Sinusitis [Unknown]
  - Inappropriate schedule of drug administration [Unknown]
  - Gait disturbance [Unknown]
  - Contusion [Unknown]

NARRATIVE: CASE EVENT DATE: 2016
